FAERS Safety Report 25928206 (Version 1)
Quarter: 2025Q4

REPORT INFORMATION
  Report Type: Report from Study
  Country: EU (occurrence: EU)
  Receive Date: 20251016
  Receipt Date: 20251016
  Transmission Date: 20260117
  Serious: Yes (Other)
  Sender: IDORSIA PHARMACEUTICALS
  Company Number: EU-IDORSIA-012044-2025-FR

PATIENT
  Age: 74 Year
  Sex: Female
  Weight: 77 kg

DRUGS (6)
  1. QUVIVIQ [Suspect]
     Active Substance: DARIDOREXANT
     Indication: Insomnia
     Dosage: 25 MG
     Route: 048
     Dates: start: 20250724, end: 20250731
  2. NEUPRO [Concomitant]
     Active Substance: ROTIGOTINE
     Indication: Restless legs syndrome
     Dosage: 2 MG
     Route: 062
  3. PRAMIPEXOLE [Concomitant]
     Active Substance: PRAMIPEXOLE
     Indication: Restless legs syndrome
     Dosage: 0.18 MG, BID
     Route: 048
  4. LEVOTHYROXINE [Concomitant]
     Active Substance: LEVOTHYROXINE
     Indication: Hypothyroidism
     Dosage: 100 UG
     Route: 048
  5. LIPTRUZET [Concomitant]
     Active Substance: ATORVASTATIN CALCIUM\EZETIMIBE
     Indication: Hypercholesterolaemia
     Dosage: 10MG/10MG
     Route: 048
  6. GABAPENTIN [Concomitant]
     Active Substance: GABAPENTIN

REACTIONS (2)
  - Concomitant disease aggravated [Recovered/Resolved]
  - Restless legs syndrome [Recovered/Resolved]

NARRATIVE: CASE EVENT DATE: 20250725
